FAERS Safety Report 8266930-8 (Version None)
Quarter: 2012Q2

REPORT INFORMATION
  Report Type: 
  Country: None (occurrence: None)
  Receive Date: 20120404
  Receipt Date: 20120404
  Transmission Date: 20120825
  Serious: Yes (Hospitalization)
  Sender: FDA-Public Use
  Company Number: None

PATIENT
  Age: 91 Year
  Sex: Male
  Weight: 55.5 kg

DRUGS (16)
  1. PRADAXA [Suspect]
     Indication: ATRIAL FIBRILLATION
     Dosage: 150MG BID PO CHRONIC
     Route: 048
  2. LASIX [Concomitant]
  3. PERI-COLACE [Concomitant]
  4. BAZA [Concomitant]
  5. CALCIUM CARBONATE [Concomitant]
  6. VENLAFAXINE [Concomitant]
  7. FLOMAX [Concomitant]
  8. LISINOPRIL [Concomitant]
  9. DURAGESIC-100 [Concomitant]
  10. PRILOSEC [Concomitant]
  11. OCULAR LUBRICANT [Concomitant]
  12. M.V.I. [Concomitant]
  13. COREG [Concomitant]
  14. VITAMIN B COMPLEX CAP [Concomitant]
  15. VITAMIN D [Concomitant]
  16. TYLENOL (CAPLET) [Concomitant]

REACTIONS (2)
  - GASTROINTESTINAL HAEMORRHAGE [None]
  - COAGULOPATHY [None]
